FAERS Safety Report 4427829-8 (Version None)
Quarter: 2004Q3

REPORT INFORMATION
  Report Type: 
  Country: None (occurrence: None)
  Receive Date: 20040812
  Receipt Date: 20040802
  Transmission Date: 20050211
  Serious: Yes (Life-Threatening)
  Sender: FDA-Public Use
  Company Number: 2000003505-FJ

PATIENT
  Age: 2 Year
  Sex: Male
  Weight: 13.3 kg

DRUGS (20)
  1. PROGRAF [Suspect]
     Indication: RENAL TRANSPLANT
     Dosage: SEE IMAGE
     Route: 042
     Dates: start: 20000701, end: 20000703
  2. PROGRAF [Suspect]
     Indication: RENAL TRANSPLANT
     Dosage: SEE IMAGE
     Route: 042
     Dates: start: 20000703, end: 20000703
  3. PROGRAF [Suspect]
     Indication: RENAL TRANSPLANT
     Dosage: SEE IMAGE
     Route: 042
     Dates: start: 20000704, end: 20000704
  4. PROGRAF [Suspect]
     Indication: RENAL TRANSPLANT
     Dosage: SEE IMAGE
     Route: 042
     Dates: start: 20000705, end: 20000705
  5. PROGRAF [Suspect]
     Indication: RENAL TRANSPLANT
     Dosage: SEE IMAGE
     Route: 042
     Dates: start: 20000706, end: 20000706
  6. PROGRAF [Suspect]
     Indication: RENAL TRANSPLANT
     Dosage: SEE IMAGE
     Route: 042
     Dates: start: 20000707, end: 20000712
  7. PROGRAF [Suspect]
     Indication: RENAL TRANSPLANT
     Dosage: SEE IMAGE
     Route: 042
     Dates: start: 20000713, end: 20000715
  8. PROGRAF [Suspect]
     Indication: RENAL TRANSPLANT
     Dosage: SEE IMAGE
     Route: 042
     Dates: start: 20000715, end: 20000716
  9. PROGRAF [Suspect]
     Indication: RENAL TRANSPLANT
     Dosage: SEE IMAGE
     Route: 042
     Dates: start: 20000716, end: 20000716
  10. PROGRAF [Suspect]
     Indication: RENAL TRANSPLANT
     Dosage: SEE IMAGE
     Route: 042
     Dates: start: 20000717, end: 20000718
  11. PROGRAF [Suspect]
     Indication: RENAL TRANSPLANT
     Dosage: SEE IMAGE
     Route: 042
     Dates: start: 20000717, end: 20000723
  12. PROGRAF [Suspect]
     Indication: RENAL TRANSPLANT
     Dosage: SEE IMAGE
     Route: 042
     Dates: start: 20000724, end: 20000724
  13. METHYLPREDNISOLONE [Concomitant]
  14. CYCLOPHOSPHAMIDE [Concomitant]
  15. SULFAMETHOXAZOLE/TRIMETHOPRI [Concomitant]
  16. FLUCONAZOLE [Concomitant]
  17. GABEXATE MESILATE [Concomitant]
  18. PHENYTOIN SODIUM [Concomitant]
  19. FLOMOXEF SODIUM [Concomitant]
  20. IMIPENEM/CILASTATIN SODIUM [Concomitant]

REACTIONS (7)
  - CONDITION AGGRAVATED [None]
  - HAEMODIALYSIS [None]
  - HAEMOLYTIC URAEMIC SYNDROME [None]
  - PERITONEAL DIALYSIS [None]
  - RENAL IMPAIRMENT [None]
  - THROMBOCYTOPENIA [None]
  - WEIGHT INCREASED [None]
